FAERS Safety Report 6548961-9 (Version None)
Quarter: 2010Q1

REPORT INFORMATION
  Report Type: 
  Country: None (occurrence: None)
  Receive Date: 20100125
  Receipt Date: 20100119
  Transmission Date: 20100710
  Serious: Yes (Other)
  Sender: FDA-Public Use
  Company Number: FR-WYE-G05381410

PATIENT
  Sex: Male

DRUGS (6)
  1. TORISEL [Suspect]
     Indication: RENAL CANCER METASTATIC
     Route: 042
     Dates: start: 20091216, end: 20100101
  2. LERCANIDIPINE HYDROCHLORIDE [Concomitant]
     Indication: HYPERTENSION
     Dosage: UNKNOWN
     Route: 048
  3. CRESTOR [Concomitant]
     Indication: TYPE IIA HYPERLIPIDAEMIA
     Dosage: UNKNOWN
     Route: 048
  4. ENALAPRIL MALEATE [Concomitant]
     Indication: HYPERTENSION
     Dosage: UNKNOWN
     Route: 048
  5. METFORMIN [Concomitant]
     Indication: TYPE IIA HYPERLIPIDAEMIA
     Dosage: UNKNOWN
     Route: 048
  6. EZETROL [Concomitant]
     Indication: TYPE IIA HYPERLIPIDAEMIA
     Dosage: UNKNOWN
     Route: 048

REACTIONS (2)
  - CYTOLYTIC HEPATITIS [None]
  - GAMMA-GLUTAMYLTRANSFERASE INCREASED [None]
